FAERS Safety Report 10915162 (Version 1)
Quarter: 2015Q1

REPORT INFORMATION
  Report Type: Spontaneous
  Country: BE (occurrence: BE)
  Receive Date: 20150316
  Receipt Date: 20150316
  Transmission Date: 20150721
  Serious: Yes (Death, Other)
  Sender: FDA-Public Use
  Company Number: BE-009507513-1503BEL006448

PATIENT
  Age: 26 Year
  Sex: Male

DRUGS (1)
  1. REMERGON [Suspect]
     Active Substance: MIRTAZAPINE
     Dosage: 2X15MG
     Route: 048

REACTIONS (1)
  - Completed suicide [Fatal]

NARRATIVE: CASE EVENT DATE: 2015
